FAERS Safety Report 19080134 (Version 1)
Quarter: 2021Q2

REPORT INFORMATION
  Report Type: Spontaneous
  Country: US (occurrence: US)
  Receive Date: 20210401
  Receipt Date: 20210401
  Transmission Date: 20210717
  Serious: No
  Sender: FDA-Public Use
  Company Number: US-ASTRAZENECA-2021A160559

PATIENT
  Sex: Female
  Weight: 86.6 kg

DRUGS (2)
  1. BYDUREON BCISE [Suspect]
     Active Substance: EXENATIDE
     Indication: TYPE 2 DIABETES MELLITUS
     Route: 058
     Dates: start: 20210128
  2. BYDUREON BCISE [Suspect]
     Active Substance: EXENATIDE
     Indication: TYPE 2 DIABETES MELLITUS
     Dosage: EVERY OTHER WEEK
     Route: 058

REACTIONS (9)
  - Abdominal distension [Unknown]
  - Pain [Unknown]
  - Nausea [Unknown]
  - Injection site hyperaesthesia [Unknown]
  - Hyperaesthesia [Unknown]
  - Lethargy [Unknown]
  - Injection site nodule [Unknown]
  - Decreased appetite [Unknown]
  - Injection site pain [Unknown]
